FAERS Safety Report 4359221-9 (Version None)
Quarter: 2004Q2

REPORT INFORMATION
  Report Type: 
  Country: None (occurrence: None)
  Receive Date: 20040517
  Receipt Date: 20040517
  Transmission Date: 20050107
  Serious: Yes (Hospitalization)
  Sender: FDA-Public Use
  Company Number: None

PATIENT
  Age: 64 Year
  Sex: Male
  Weight: 90.7 kg

DRUGS (12)
  1. GABAPENTIN [Suspect]
     Dosage: 600MG, TID, BY MOUTH
     Route: 048
     Dates: start: 20030926, end: 20040317
  2. DIPYRIDAMOLE [Concomitant]
  3. CALCIUM CARBONATE [Concomitant]
  4. ASPIRIN [Concomitant]
  5. DOCUSATE SODIUM (COLACE) [Concomitant]
  6. ISOSORBIDE DINITRATE [Concomitant]
  7. NORTRIPTYLINE HCL [Concomitant]
  8. VITAMIN B COMPLEX CAP [Concomitant]
  9. FLUNISOLIDE (AEROBID) [Concomitant]
  10. ATENOLOL [Concomitant]
  11. INSULIN , HUMAN REGULAR (NOVOLIN-R) [Concomitant]
  12. DILTIAZEM [Concomitant]

REACTIONS (3)
  - CONFUSIONAL STATE [None]
  - DIZZINESS [None]
  - LETHARGY [None]
